FAERS Safety Report 5346032-0 (Version None)
Quarter: 2007Q2

REPORT INFORMATION
  Report Type: 
  Country: None (occurrence: None)
  Receive Date: 20070605
  Receipt Date: 20070525
  Transmission Date: 20071010
  Serious: Yes (Other)
  Sender: FDA-Public Use
  Company Number: US-ROCHE-496140

PATIENT
  Age: 92 Year
  Sex: Female
  Weight: 45.8 kg

DRUGS (1)
  1. BONIVA [Suspect]
     Indication: OSTEOPOROSIS
     Dosage: STRENGTH AND FORMULATION:  3MG/3ML
     Route: 040
     Dates: start: 20061103

REACTIONS (4)
  - NAUSEA [None]
  - THROMBOPHLEBITIS [None]
  - URTICARIA [None]
  - VOMITING [None]
